FAERS Safety Report 25283321 (Version 1)
Quarter: 2025Q2

REPORT INFORMATION
  Report Type: Spontaneous
  Country: US (occurrence: US)
  Receive Date: 20250508
  Receipt Date: 20250508
  Transmission Date: 20250716
  Serious: Yes (Death)
  Sender: PFIZER
  Company Number: US-PFIZER INC-202500066540

PATIENT
  Age: 52 Year
  Sex: Female

DRUGS (11)
  1. IBRANCE [Suspect]
     Active Substance: PALBOCICLIB
     Route: 048
     Dates: end: 20250326
  2. TYLENOL [Concomitant]
     Active Substance: ACETAMINOPHEN
  3. AMLODIPINE BESYLATE [Concomitant]
     Active Substance: AMLODIPINE BESYLATE
  4. ALBUTEROL SULFATE [Concomitant]
     Active Substance: ALBUTEROL SULFATE
     Route: 055
  5. BREO ELLIPTA [Concomitant]
     Active Substance: FLUTICASONE FUROATE\VILANTEROL TRIFENATATE
     Route: 048
  6. FUROSEMIDE [Concomitant]
     Active Substance: FUROSEMIDE
  7. LETROZOLE [Concomitant]
     Active Substance: LETROZOLE
  8. LURASIDONE [Concomitant]
     Active Substance: LURASIDONE
  9. MONTELUKAST [Concomitant]
     Active Substance: MONTELUKAST
  10. NYSTOP [Concomitant]
     Active Substance: NYSTATIN
     Route: 061
  11. SPIRONOLACTONE [Concomitant]
     Active Substance: SPIRONOLACTONE

REACTIONS (1)
  - Death [Fatal]
